FAERS Safety Report 4401854-5 (Version None)
Quarter: 2004Q3

REPORT INFORMATION
  Report Type: 
  Country: None (occurrence: None)
  Receive Date: 20040720
  Receipt Date: 20040713
  Transmission Date: 20050211
  Serious: Yes (Hospitalization)
  Sender: FDA-Public Use
  Company Number: PHBS2004FI09270

PATIENT
  Age: 72 Year
  Sex: Male

DRUGS (1)
  1. VOLTAREN [Suspect]
     Indication: BURSITIS
     Dosage: 75 MG, ONCE/SINGLE
     Route: 030
     Dates: start: 20040623, end: 20040623

REACTIONS (5)
  - LOSS OF CONSCIOUSNESS [None]
  - MICTURITION DISORDER [None]
  - SWELLING FACE [None]
  - SWOLLEN TONGUE [None]
  - VOMITING [None]
